FAERS Safety Report 8556832-1 (Version None)
Quarter: 2012Q3

REPORT INFORMATION
  Report Type: 
  Country: None (occurrence: None)
  Receive Date: 20120801
  Receipt Date: 20120724
  Transmission Date: 20120928
  Serious: Yes (Hospitalization)
  Sender: FDA-Public Use
  Company Number: US-ACTELION-A-US2012-69265

PATIENT
  Age: 59 Year
  Sex: Female

DRUGS (5)
  1. SILDENAFIL [Concomitant]
  2. FUROSEMIDE [Concomitant]
  3. TRACLEER [Suspect]
     Indication: PULMONARY ARTERIAL HYPERTENSION
     Dosage: UNK
     Route: 048
  4. SPIRONOLACTONE [Concomitant]
  5. ASPIRIN [Concomitant]

REACTIONS (1)
  - CELLULITIS [None]
